FAERS Safety Report 19316737 (Version 1)
Quarter: 2021Q2

REPORT INFORMATION
  Report Type: Spontaneous
  Country: US (occurrence: US)
  Receive Date: 20210527
  Receipt Date: 20210527
  Transmission Date: 20210717
  Serious: Yes (Death, Other)
  Sender: FDA-Public Use
  Company Number: US-TAKEDA-2021TUS033339

PATIENT
  Age: 88 Year
  Sex: Female
  Weight: 52.2 kg

DRUGS (1)
  1. NINLARO [Suspect]
     Active Substance: IXAZOMIB CITRATE
     Indication: WALDENSTROM^S MACROGLOBULINAEMIA
     Dosage: 3 MILLIGRAM, 1/WEEK
     Route: 048
     Dates: start: 20180207, end: 20210515

REACTIONS (1)
  - Death [Fatal]

NARRATIVE: CASE EVENT DATE: 20210515
